FAERS Safety Report 20769494 (Version 1)
Quarter: 2022Q2

REPORT INFORMATION
  Report Type: Other
  Country: CA (occurrence: CA)
  Receive Date: 20220429
  Receipt Date: 20220429
  Transmission Date: 20220721
  Serious: Yes (Other)
  Sender: FDA-Public Use
  Company Number: CA-NAPPMUNDI-GBR-2022-0097360

PATIENT
  Age: 59 Year
  Sex: Male

DRUGS (2)
  1. MORPHINE SULFATE [Suspect]
     Active Substance: MORPHINE SULFATE
     Indication: Drug use disorder
     Dosage: 250 MILLIGRAM
     Route: 048
  2. FENTANYL [Suspect]
     Active Substance: FENTANYL
     Indication: Drug abuse
     Dosage: UNKNOWN
     Route: 042

REACTIONS (3)
  - Appetite disorder [Recovered/Resolved]
  - Drug abuse [Recovered/Resolved]
  - Drug use disorder [Recovered/Resolved]
